FAERS Safety Report 7765741-7 (Version None)
Quarter: 2011Q3

REPORT INFORMATION
  Report Type: 
  Country: None (occurrence: None)
  Receive Date: 20110921
  Receipt Date: 20110914
  Transmission Date: 20111222
  Serious: Yes (Other)
  Sender: FDA-Public Use
  Company Number: US-AMGEN-USASP2011045842

PATIENT
  Age: 72 Year
  Sex: Female
  Weight: 83.9 kg

DRUGS (6)
  1. PREDNISONE [Concomitant]
     Indication: IDIOPATHIC THROMBOCYTOPENIC PURPURA
     Dosage: 60 MG, UNK
     Dates: end: 20110615
  2. METFORMIN HCL [Concomitant]
     Indication: DIABETES MELLITUS
     Dosage: 500 MG, QD
  3. IMMUNOGLOBULINS [Concomitant]
     Indication: THROMBOCYTOPENIA
     Dosage: 80 G, UNK
     Route: 042
     Dates: start: 20110505, end: 20110605
  4. CORTICOSTEROIDS [Concomitant]
     Indication: IDIOPATHIC THROMBOCYTOPENIC PURPURA
  5. LOVENOX [Concomitant]
     Dosage: 80 MG, BID
     Route: 058
     Dates: start: 20110512, end: 20110531
  6. NPLATE [Suspect]
     Indication: IDIOPATHIC THROMBOCYTOPENIC PURPURA
     Dosage: 3 MUG/KG, UNK
     Route: 058
     Dates: start: 20110310, end: 20110729

REACTIONS (3)
  - TRANSVERSE SINUS THROMBOSIS [None]
  - THERAPEUTIC RESPONSE DECREASED [None]
  - DRUG INEFFECTIVE [None]
